FAERS Safety Report 8505975 (Version 2)
Quarter: 2015Q1

REPORT INFORMATION
  Report Type: Spontaneous
  Country: US (occurrence: US)
  Receive Date: 20120412
  Receipt Date: 20150113
  Transmission Date: 20150721
  Serious: Yes (Other)
  Sender: FDA-Public Use
  Company Number: US-ROCHE-725854

PATIENT
  Age: 79 Year
  Sex: Female

DRUGS (5)
  1. AVASTIN [Suspect]
     Active Substance: BEVACIZUMAB
     Dosage: FIFTH INJECTION
     Route: 050
  2. AVASTIN [Suspect]
     Active Substance: BEVACIZUMAB
     Dosage: FOURTH INJECTION
     Route: 050
  3. AVASTIN [Suspect]
     Active Substance: BEVACIZUMAB
     Dosage: SECOND INJECTION
     Route: 050
  4. AVASTIN [Suspect]
     Active Substance: BEVACIZUMAB
     Dosage: THIRD INJECTION
     Route: 050
  5. AVASTIN [Suspect]
     Active Substance: BEVACIZUMAB
     Indication: AGE-RELATED MACULAR DEGENERATION
     Dosage: FIRST INJECTION
     Route: 050

REACTIONS (8)
  - Anxiety [Unknown]
  - Injury [Unknown]
  - Visual acuity reduced [Unknown]
  - Blindness unilateral [Unknown]
  - Retinal detachment [Unknown]
  - Eye infection [Unknown]
  - Endophthalmitis [Unknown]
  - Product quality issue [Unknown]

NARRATIVE: CASE EVENT DATE: 20100325
